FAERS Safety Report 16171549 (Version 1)
Quarter: 2019Q2

REPORT INFORMATION
  Report Type: Spontaneous
  Country: NL (occurrence: NL)
  Receive Date: 20190408
  Receipt Date: 20190408
  Transmission Date: 20190711
  Serious: Yes (Hospitalization, Other)
  Sender: FDA-Public Use
  Company Number: NL-ALLERGAN-1915239US

PATIENT
  Sex: Female

DRUGS (3)
  1. LEVEMIR [Concomitant]
     Active Substance: INSULIN DETEMIR
     Indication: TYPE 2 DIABETES MELLITUS
  2. BOTULINUM TOXIN TYPE A UNK [Suspect]
     Active Substance: BOTULINUM TOXIN TYPE A
     Indication: DYSPHAGIA
     Dosage: 50 UNITS, SINGLE
     Route: 030
  3. NOVORAPID [Concomitant]
     Active Substance: INSULIN ASPART
     Indication: TYPE 2 DIABETES MELLITUS

REACTIONS (5)
  - Intervertebral discitis [Recovered/Resolved with Sequelae]
  - Spinal disorder [Recovered/Resolved]
  - Off label use [Unknown]
  - Pharyngeal abscess [Recovered/Resolved]
  - Spinal cord compression [Unknown]
